FAERS Safety Report 6274289-0 (Version None)
Quarter: 2009Q3

REPORT INFORMATION
  Report Type: 
  Country: None (occurrence: None)
  Receive Date: 20090720
  Receipt Date: 20090713
  Transmission Date: 20100115
  Serious: Yes (Other)
  Sender: FDA-Public Use
  Company Number: US-ASTRAZENECA-2009UW13116

PATIENT
  Age: 45 Year
  Sex: Male
  Weight: 106.1 kg

DRUGS (1)
  1. SEROQUEL [Suspect]
     Indication: BIPOLAR DISORDER
     Route: 048
     Dates: start: 20020101, end: 20050101

REACTIONS (4)
  - CHEST PAIN [None]
  - DRUG ABUSE [None]
  - PANCREATITIS [None]
  - TYPE 1 DIABETES MELLITUS [None]
